FAERS Safety Report 11501243 (Version 1)
Quarter: 2015Q3

REPORT INFORMATION
  Report Type: Spontaneous
  Country: US (occurrence: US)
  Receive Date: 20150903
  Receipt Date: 20150903
  Transmission Date: 20151125
  Serious: No
  Sender: FDA-Public Use
  Company Number: US-ELI_LILLY_AND_COMPANY-US200908000824

PATIENT
  Sex: Female

DRUGS (6)
  1. HUMALOG [Suspect]
     Active Substance: INSULIN LISPRO
     Dosage: UNK, AS NEEDED
  2. HUMALOG [Suspect]
     Active Substance: INSULIN LISPRO
     Dosage: 8 U, DAILY (1/D)
  3. LANTUS [Concomitant]
     Active Substance: INSULIN GLARGINE
  4. DILANTIN [Concomitant]
     Active Substance: PHENYTOIN
     Dosage: 300 MG, DAILY (1/D)
     Dates: start: 1975
  5. HUMALOG [Suspect]
     Active Substance: INSULIN LISPRO
     Dosage: 14 U, EACH EVENING
  6. HUMALOG [Suspect]
     Active Substance: INSULIN LISPRO
     Dosage: 10 U, EACH MORNING
     Dates: start: 1985

REACTIONS (7)
  - Nervousness [Not Recovered/Not Resolved]
  - Incorrect dose administered [Unknown]
  - Cerebral disorder [Not Recovered/Not Resolved]
  - Crying [Unknown]
  - Blood glucose decreased [Unknown]
  - Blood glucose fluctuation [Unknown]
  - Blood glucose increased [Not Recovered/Not Resolved]

NARRATIVE: CASE EVENT DATE: 2006
